FAERS Safety Report 16930725 (Version 1)
Quarter: 2019Q4

REPORT INFORMATION
  Report Type: Spontaneous
  Country: US (occurrence: US)
  Receive Date: 20191017
  Receipt Date: 20191017
  Transmission Date: 20200122
  Serious: Yes (Hospitalization, Other)
  Sender: FDA-Public Use
  Company Number: None

PATIENT
  Age: 68 Year
  Sex: Female
  Weight: 74.25 kg

DRUGS (15)
  1. BREO ELLIPTA [Concomitant]
     Active Substance: FLUTICASONE FUROATE\VILANTEROL TRIFENATATE
  2. NORGESTIMATE-ETH ESTADIOL [Concomitant]
  3. POTASSIUM [Concomitant]
     Active Substance: POTASSIUM
  4. VITAMIN D [Concomitant]
     Active Substance: VITAMIN D NOS
  5. DULOXETIME [Concomitant]
  6. TRAMADOL. [Concomitant]
     Active Substance: TRAMADOL
  7. TEMOZOLOMIDE. [Suspect]
     Active Substance: TEMOZOLOMIDE
     Indication: PANCREATIC CARCINOMA
     Route: 048
     Dates: start: 20190607
  8. MULTIVITAMIN [Concomitant]
     Active Substance: VITAMINS
  9. OMEGA-3 ACIDS [Concomitant]
     Active Substance: OMEGA-3 FATTY ACIDS
  10. CAPECITABINE. [Suspect]
     Active Substance: CAPECITABINE
     Indication: PANCREATIC CARCINOMA
     Route: 048
     Dates: start: 20190607
  11. CBD OIL [Concomitant]
     Active Substance: CANNABIDIOL\HERBALS
  12. CETIRIZINE [Concomitant]
     Active Substance: CETIRIZINE HYDROCHLORIDE
  13. MELATONIN [Concomitant]
     Active Substance: MELATONIN
  14. LEVOTHYROXINE. [Concomitant]
     Active Substance: LEVOTHYROXINE
  15. LORAZEPAM. [Concomitant]
     Active Substance: LORAZEPAM

REACTIONS (3)
  - Infection [None]
  - Diabetes mellitus [None]
  - Therapy cessation [None]

NARRATIVE: CASE EVENT DATE: 20190902
